FAERS Safety Report 14114435 (Version 1)
Quarter: 2017Q4

REPORT INFORMATION
  Report Type: Spontaneous
  Country: US (occurrence: None)
  Receive Date: 20171023
  Receipt Date: 20171023
  Transmission Date: 20180321
  Serious: Yes (Hospitalization)
  Sender: FDA-Public Use
  Company Number: None

PATIENT
  Age: 76 Year
  Sex: Female

DRUGS (3)
  1. TACROLIMUS. [Suspect]
     Active Substance: TACROLIMUS
     Route: 048
  2. MYFORTIC [Suspect]
     Active Substance: MYCOPHENOLATE SODIUM
     Route: 048
  3. PREDNISONE 5 MG [Suspect]
     Active Substance: PREDNISONE
     Route: 048

REACTIONS (2)
  - Unevaluable event [None]
  - Hospitalisation [None]

NARRATIVE: CASE EVENT DATE: 20171020
